FAERS Safety Report 24948900 (Version 1)
Quarter: 2025Q1

REPORT INFORMATION
  Report Type: Spontaneous
  Country: US (occurrence: US)
  Receive Date: 20250210
  Receipt Date: 20250210
  Transmission Date: 20250409
  Serious: No
  Sender: BRISTOL-MYERS SQUIBB COMPANY
  Company Number: US-BRISTOL-MYERS SQUIBB COMPANY-2025-018074

PATIENT
  Age: 60 Year
  Sex: Male

DRUGS (6)
  1. ELIQUIS [Suspect]
     Active Substance: APIXABAN
     Indication: Haematopoietic neoplasm
     Dosage: ROUTE: ENTERAL TUBE: GASTRIC
     Dates: start: 20241213
  2. ELIQUIS [Suspect]
     Active Substance: APIXABAN
     Indication: Haemostasis
  3. ELIQUIS [Suspect]
     Active Substance: APIXABAN
     Indication: Thrombocytosis
  4. IBRANCE [Concomitant]
     Active Substance: PALBOCICLIB
     Indication: Oral cavity cancer metastatic
     Dosage: 28-DAY SUPPLY
     Route: 048
     Dates: start: 20250107
  5. LIPITOR [Concomitant]
     Active Substance: ATORVASTATIN CALCIUM
     Indication: Hypertensive heart disease
     Dosage: TAKE 1 TABLET (80 MG TOTAL) BY G-TUBE ROUTE DAILY?G-TUBE ROUTE
     Dates: start: 20230114
  6. LIPITOR [Concomitant]
     Active Substance: ATORVASTATIN CALCIUM
     Indication: Type V hyperlipidaemia

REACTIONS (1)
  - Off label use [Unknown]
